FAERS Safety Report 9132249 (Version 5)
Quarter: 2013Q4

REPORT INFORMATION
  Report Type: Report from Study
  Country: GB (occurrence: GB)
  Receive Date: 20130301
  Receipt Date: 20131003
  Transmission Date: 20140711
  Serious: Yes (Other)
  Sender: FDA-Public Use
  Company Number: GB-VERTEX PHARMACEUTICALS INC.-2013-002889

PATIENT
  Age: 55 Year
  Sex: Male

DRUGS (3)
  1. VX-950 (TELAPREVIR) [Suspect]
     Indication: HEPATITIS C
     Dosage: UNK
     Route: 048
     Dates: start: 20120115
  2. PEGYLATED INTERFERON [Suspect]
     Indication: CHRONIC HEPATITIS C
     Dosage: UNK
     Route: 058
     Dates: start: 20130115
  3. RIBAVIRIN [Suspect]
     Indication: CHRONIC HEPATITIS C
     Dosage: UNK
     Route: 048
     Dates: start: 20130115

REACTIONS (11)
  - Back disorder [Recovered/Resolved]
  - Back injury [Not Recovered/Not Resolved]
  - Myositis [Recovered/Resolved]
  - Joint swelling [Recovered/Resolved]
  - Fatigue [Not Recovered/Not Resolved]
  - Dermatitis [Unknown]
  - Chemical burn of skin [Not Recovered/Not Resolved]
  - Dyspnoea exertional [Unknown]
  - Cough [Recovered/Resolved]
  - Disturbance in attention [Not Recovered/Not Resolved]
  - Ear pain [Not Recovered/Not Resolved]
